FAERS Safety Report 5382271-0 (Version None)
Quarter: 2007Q3

REPORT INFORMATION
  Report Type: 
  Country: None (occurrence: None)
  Receive Date: 20070705
  Receipt Date: 20070622
  Transmission Date: 20080115
  Serious: Yes (Life-Threatening, Hospitalization)
  Sender: FDA-Public Use
  Company Number: 2007-02992

PATIENT
  Age: 40 Year
  Sex: Female

DRUGS (6)
  1. TRELSTAR [Suspect]
     Dosage: 11.25 MG, 1 IN 3 M, INTRAMUSCULAR
     Route: 030
  2. CORTANCYL [Concomitant]
  3. AMLODIPINE BESYLATE [Concomitant]
  4. VALSARTAN [Concomitant]
  5. ELISOR [Concomitant]
  6. LANTUS [Concomitant]

REACTIONS (1)
  - KIDNEY TRANSPLANT REJECTION [None]
